FAERS Safety Report 22320760 (Version 1)
Quarter: 2023Q2

REPORT INFORMATION
  Report Type: Spontaneous
  Country: JP (occurrence: JP)
  Receive Date: 20230515
  Receipt Date: 20230515
  Transmission Date: 20230722
  Serious: Yes (Other)
  Sender: FDA-Public Use
  Company Number: JP-DSJP-DSJ-2023-118290

PATIENT
  Age: 68 Year
  Sex: Male

DRUGS (10)
  1. EDOXABAN TOSYLATE [Suspect]
     Active Substance: EDOXABAN TOSYLATE
     Indication: Atrial fibrillation
     Dosage: 30 MG/DAY
     Route: 065
  2. CARPERITIDE [Concomitant]
     Active Substance: CARPERITIDE
     Dosage: MAXIMUM DOSE OF 0.75 UG/KG/MIN
     Route: 065
  3. DOBUTAMINE HYDROCHLORIDE [Concomitant]
     Active Substance: DOBUTAMINE HYDROCHLORIDE
     Dosage: 4 UG/KG/MIN
     Route: 065
  4. DOPAMINE [DOPAMINE HYDROCHLORIDE] [Concomitant]
     Dosage: 8 UG/KG/MIN
     Route: 065
  5. RENIN-ANGIOTENSIN SYSTEM INHIBITOR [Concomitant]
     Dosage: UNK
     Route: 065
  6. BETA-BLOCKING AGENTS [Concomitant]
     Dosage: UNK
     Route: 065
  7. UNSPECIFIED INGREDIENT [Concomitant]
     Active Substance: UNSPECIFIED INGREDIENT
     Dosage: UNK
     Route: 065
  8. MINERALOCORTICOID RECEPTOR ANTAGONIST [Concomitant]
     Dosage: UNK
     Route: 065
  9. UNSPECIFIED INGREDIENT [Concomitant]
     Active Substance: UNSPECIFIED INGREDIENT
     Dosage: UNK
     Route: 065
  10. SGLT2 INHIBITORS [Concomitant]
     Dosage: UNK
     Route: 065

REACTIONS (2)
  - Low cardiac output syndrome [Recovering/Resolving]
  - Multiple organ dysfunction syndrome [Recovering/Resolving]
